FAERS Safety Report 19069048 (Version 2)
Quarter: 2021Q2

REPORT INFORMATION
  Report Type: Spontaneous
  Country: US (occurrence: US)
  Receive Date: 20210329
  Receipt Date: 20210414
  Transmission Date: 20210717
  Serious: Yes (Life-Threatening, Hospitalization)
  Sender: FDA-Public Use
  Company Number: US-PFIZER INC-3078162

PATIENT
  Age: 89 Year
  Sex: Male
  Weight: 72 kg

DRUGS (8)
  1. LIDOCAINE HCL [Suspect]
     Active Substance: LIDOCAINE HYDROCHLORIDE
     Indication: ANAESTHESIA
     Dosage: 30 ML, SWISH AND GARGLE
     Route: 048
  2. CIMETIDINE [Interacting]
     Active Substance: CIMETIDINE
     Dosage: UNK
  3. ATROPINE SULFATE. [Concomitant]
     Active Substance: ATROPINE SULFATE
     Dosage: 0.4 MG, UNK
     Route: 030
  4. FERROUS GLUCONATE [Concomitant]
     Active Substance: FERROUS GLUCONATE
     Dosage: 325 MG, FREQ: 3 DAY; INTERVAL:1
  5. TOLAZAMIDE. [Concomitant]
     Active Substance: TOLAZAMIDE
     Dosage: 500 MG, PER DAY
  6. POTASSIUM CHLORIDE. [Concomitant]
     Active Substance: POTASSIUM CHLORIDE
     Dosage: 40 MEQ, 1X/DAY
  7. DIGOXIN. [Concomitant]
     Active Substance: DIGOXIN
     Dosage: 0.25 MG, 1X/DAY
  8. FUROSEMIDE. [Concomitant]
     Active Substance: FUROSEMIDE
     Dosage: 40 MG, 1X/DAY

REACTIONS (7)
  - Drug level increased [Recovered/Resolved]
  - Accidental exposure to product [Recovered/Resolved]
  - Generalised tonic-clonic seizure [Recovered/Resolved]
  - Inhibitory drug interaction [Recovered/Resolved]
  - Disorientation [Recovered/Resolved]
  - Apnoea [Recovered/Resolved]
  - Agitation [Recovered/Resolved]
